FAERS Safety Report 20007398 (Version 1)
Quarter: 2021Q4

REPORT INFORMATION
  Report Type: Spontaneous
  Country: US (occurrence: US)
  Receive Date: 20211029
  Receipt Date: 20211029
  Transmission Date: 20220303
  Serious: Yes (Other)
  Sender: FDA-Public Use
  Company Number: US-SUN PHARMACEUTICAL INDUSTRIES LTD-2021R1-304199

PATIENT
  Sex: Female
  Weight: 84.81 kg

DRUGS (1)
  1. EPOPROSTENOL [Suspect]
     Active Substance: EPOPROSTENOL
     Indication: Pulmonary arterial hypertension
     Dosage: 40 NG/KG/MIN, CONTINUOUS
     Route: 042

REACTIONS (2)
  - Swelling [Unknown]
  - Hot flush [Unknown]
